FAERS Safety Report 5854706-8 (Version None)
Quarter: 2008Q3

REPORT INFORMATION
  Report Type: 
  Country: None (occurrence: None)
  Receive Date: 20080822
  Receipt Date: 20080811
  Transmission Date: 20090109
  Serious: Yes (Death)
  Sender: FDA-Public Use
  Company Number: GB-PFIZER INC-2008067937

PATIENT
  Age: 56 Year
  Sex: Female
  Weight: 75 kg

DRUGS (9)
  1. GABAPENTIN [Suspect]
     Indication: CANCER PAIN
     Route: 048
     Dates: start: 20080401, end: 20080506
  2. BENDROFLUAZIDE [Concomitant]
     Route: 048
     Dates: start: 20050101, end: 20080506
  3. IBUPROFEN [Concomitant]
     Route: 048
     Dates: start: 20080418, end: 20080506
  4. NORETHINDRONE ACETATE [Concomitant]
     Route: 048
     Dates: start: 20070101, end: 20080506
  5. ORAMORPH SR [Concomitant]
     Route: 048
     Dates: start: 20080418, end: 20080506
  6. RABEPRAZOLE SODIUM [Concomitant]
     Route: 048
     Dates: start: 20030101, end: 20080506
  7. VALSARTAN [Concomitant]
     Route: 048
     Dates: start: 20050101, end: 20080506
  8. VENLAFAXINE HCL [Concomitant]
     Route: 048
     Dates: start: 20071120, end: 20080506
  9. MORPHINE [Concomitant]
     Route: 048
     Dates: start: 20080418, end: 20080506

REACTIONS (1)
  - RENAL FAILURE ACUTE [None]
